FAERS Safety Report 10587678 (Version 3)
Quarter: 2014Q4

REPORT INFORMATION
  Report Type: Report from Study
  Country: DE (occurrence: DE)
  Receive Date: 20141117
  Receipt Date: 20141208
  Transmission Date: 20150529
  Serious: Yes (Death)
  Sender: FDA-Public Use
  Company Number: PHHY2014DE147938

PATIENT
  Sex: Female

DRUGS (1)
  1. EVEROLIMUS [Suspect]
     Active Substance: EVEROLIMUS
     Indication: BREAST CANCER
     Dosage: 5 MG, QD
     Route: 048
     Dates: start: 20141010, end: 20141110

REACTIONS (7)
  - Hepatic failure [Fatal]
  - Dyspnoea [Fatal]
  - Multi-organ failure [Fatal]
  - Fatigue [Fatal]
  - Mental status changes [Fatal]
  - Cardiac failure [Fatal]
  - Metastases to liver [Fatal]

NARRATIVE: CASE EVENT DATE: 20141028
